FAERS Safety Report 8023069-4 (Version None)
Quarter: 2012Q1

REPORT INFORMATION
  Report Type: 
  Country: None (occurrence: None)
  Receive Date: 20120104
  Receipt Date: 20111227
  Transmission Date: 20120608
  Serious: Yes (Other)
  Sender: FDA-Public Use
  Company Number: JP-PFIZER INC-2011309220

PATIENT
  Age: 60 Year
  Sex: Male

DRUGS (1)
  1. METHYLPREDNISOLONE SODIUM SUCCINATE [Suspect]
     Dosage: 100 MG, UNK
     Route: 042
     Dates: start: 20110501

REACTIONS (2)
  - CARDIO-RESPIRATORY ARREST [None]
  - ARTERIOSPASM CORONARY [None]
